FAERS Safety Report 5914464-5 (Version None)
Quarter: 2008Q4

REPORT INFORMATION
  Report Type: 
  Country: None (occurrence: None)
  Receive Date: 20081007
  Receipt Date: 20081001
  Transmission Date: 20090506
  Serious: Yes (Hospitalization)
  Sender: FDA-Public Use
  Company Number: 2008SP017732

PATIENT
  Age: 70 Year
  Sex: Male
  Weight: 63.9572 kg

DRUGS (13)
  1. INTERFERON ALFA -2B RECOMBINANT (S-P) [Suspect]
     Indication: METASTATIC MALIGNANT MELANOMA
     Dosage: 36 MIU; IV, 18 MIU; SC
     Dates: start: 20080407, end: 20080501
  2. INTERFERON ALFA -2B RECOMBINANT (S-P) [Suspect]
     Indication: METASTATIC MALIGNANT MELANOMA
     Dosage: 36 MIU; IV, 18 MIU; SC
     Dates: start: 20080519, end: 20080718
  3. KW2871 (INVESTIGATIONAL DRUG) [Suspect]
     Indication: METASTATIC MALIGNANT MELANOMA
     Dosage: 9 MG; IV
     Route: 042
     Dates: start: 20080409, end: 20080716
  4. ASPIRIN [Concomitant]
  5. BENADRYL [Concomitant]
  6. IMODIUM [Concomitant]
  7. EASYLAX [Concomitant]
  8. FLUOXETINE [Concomitant]
  9. ALPRAZOLAM [Concomitant]
  10. VIAGRA [Concomitant]
  11. VITAMIN D3 [Concomitant]
  12. LOVAZA [Concomitant]
  13. JUICE PLUS [Concomitant]

REACTIONS (21)
  - ACUTE RESPIRATORY DISTRESS SYNDROME [None]
  - APPENDICITIS [None]
  - APPENDICITIS PERFORATED [None]
  - ATRIAL FIBRILLATION [None]
  - BLOOD PRESSURE DIASTOLIC DECREASED [None]
  - CONDITION AGGRAVATED [None]
  - DIARRHOEA [None]
  - DIZZINESS [None]
  - DRUG TOXICITY [None]
  - FATIGUE [None]
  - GENERAL PHYSICAL HEALTH DETERIORATION [None]
  - LEFT VENTRICULAR DYSFUNCTION [None]
  - LUNG INFILTRATION [None]
  - NEUTROPENIA [None]
  - OXYGEN SATURATION DECREASED [None]
  - PERITONITIS [None]
  - PULSE ABNORMAL [None]
  - RALES [None]
  - RESPIRATORY RATE INCREASED [None]
  - SEPTIC SHOCK [None]
  - SEROSITIS [None]
